FAERS Safety Report 16132719 (Version 1)
Quarter: 2019Q1

REPORT INFORMATION
  Report Type: Spontaneous
  Country: IT (occurrence: IT)
  Receive Date: 20190329
  Receipt Date: 20190329
  Transmission Date: 20190418
  Serious: Yes (Other)
  Sender: FDA-Public Use
  Company Number: IT-TEVA-2019-IT-1032581

PATIENT
  Age: 39 Year
  Sex: Female
  Weight: 56.5 kg

DRUGS (2)
  1. LEVOFLOXACIN. [Suspect]
     Active Substance: LEVOFLOXACIN
     Indication: PLASMODIUM FALCIPARUM INFECTION
     Dosage: 750 MILLIGRAM DAILY;
     Route: 065
     Dates: start: 2016
  2. EURARTESIM [Suspect]
     Active Substance: ARTENIMOL\PIPERAQUINE PHOSPHATE
     Indication: PLASMODIUM FALCIPARUM INFECTION
     Dosage: 320MG/40 MG/DAY FOR THREE DAYS
     Route: 065
     Dates: start: 2016

REACTIONS (1)
  - Treatment failure [Unknown]

NARRATIVE: CASE EVENT DATE: 2016
